FAERS Safety Report 7414300-4 (Version None)
Quarter: 2011Q2

REPORT INFORMATION
  Report Type: 
  Country: None (occurrence: None)
  Receive Date: 20110411
  Receipt Date: 20110411
  Transmission Date: 20111010
  Serious: Yes (Hospitalization)
  Sender: FDA-Public Use
  Company Number: None

PATIENT
  Sex: Male
  Weight: 90.7194 kg

DRUGS (1)
  1. PLAVIX [Suspect]
     Indication: HYPERTENSION
     Dosage: 75 MG DAILY PO
     Route: 048
     Dates: start: 20110306, end: 20110312

REACTIONS (1)
  - URTICARIA [None]
